FAERS Safety Report 7669890-3 (Version None)
Quarter: 2011Q3

REPORT INFORMATION
  Report Type: 
  Country: None (occurrence: None)
  Receive Date: 20110808
  Receipt Date: 20110726
  Transmission Date: 20111222
  Serious: Yes (Other)
  Sender: FDA-Public Use
  Company Number: PHHY2011US67847

PATIENT
  Sex: Male
  Weight: 81.633 kg

DRUGS (6)
  1. MULTIVITAMINS W/FLUORIDE [Concomitant]
     Dosage: UNK UKN, UNK
     Route: 065
  2. GLEEVEC [Suspect]
     Indication: ACUTE LYMPHOCYTIC LEUKAEMIA
     Dosage: 400 MG, DAILY
     Route: 048
     Dates: start: 20101109
  3. GLIPIZIDE W/METFORMIN HYDROCHLORIDE [Concomitant]
     Dosage: UNK UKN, UNK
     Route: 065
  4. CHLORTHALIDONE [Concomitant]
     Dosage: UNK UKN, UNK
     Route: 065
  5. FISH OIL [Concomitant]
     Dosage: UNK UKN, UNK
     Route: 065
  6. ATENENTOL [Concomitant]
     Dosage: UNK UKN, UNK
     Route: 065

REACTIONS (1)
  - PROTEIN URINE PRESENT [None]
